FAERS Safety Report 4869235-8 (Version None)
Quarter: 2005Q4

REPORT INFORMATION
  Report Type: 
  Country: None (occurrence: None)
  Receive Date: 20051230
  Receipt Date: 20051011
  Transmission Date: 20060501
  Serious: Yes (Other)
  Sender: FDA-Public Use
  Company Number: PHEH2005US11370

PATIENT
  Age: 65 Year
  Sex: Female

DRUGS (2)
  1. ZELNORM [Suspect]
     Dosage: 6 MG, QD
     Route: 048
     Dates: start: 20050801, end: 20051010
  2. PLAVIX [Suspect]

REACTIONS (4)
  - CONSTIPATION [None]
  - HAEMORRHOIDS [None]
  - HYPERTROPHIC ANAL PAPILLA [None]
  - RECTAL HAEMORRHAGE [None]
